FAERS Safety Report 8811567 (Version 1)
Quarter: 2012Q4

REPORT INFORMATION
  Report Type: 
  Country: US (occurrence: US)
  Receive Date: 20120927
  Receipt Date: 20120927
  Transmission Date: 20130627
  Serious: Yes (Hospitalization)
  Sender: FDA-Public Use
  Company Number: US-ACTELION-A-NJ2012-71672

PATIENT
  Age: 54 Year
  Sex: Female

DRUGS (3)
  1. VELETRI [Suspect]
     Indication: PULMONARY ARTERIAL HYPERTENSION
     Dosage: 13 ng/kg, per min
     Route: 041
     Dates: start: 20120615
  2. LETAIRIS [Concomitant]
  3. COUMADIN [Concomitant]

REACTIONS (8)
  - Hypoaesthesia oral [Unknown]
  - Fluid overload [Unknown]
  - Malaise [Unknown]
  - Fatigue [Unknown]
  - Asthenia [Unknown]
  - Dizziness [Unknown]
  - Dyspnoea [Unknown]
  - Vomiting [Unknown]
